FAERS Safety Report 23487670 (Version 1)
Quarter: 2024Q1

REPORT INFORMATION
  Report Type: Other
  Country: None (occurrence: US)
  Receive Date: 20240206
  Receipt Date: 20240206
  Transmission Date: 20240409
  Serious: No
  Sender: FDA-Public Use
  Company Number: US-SERB S.A.S.-2152721

PATIENT
  Age: 67 Year
  Sex: Male

DRUGS (1)
  1. CYANOKIT [Suspect]
     Active Substance: HYDROXOCOBALAMIN
     Indication: Vasoplegia syndrome
     Route: 042

REACTIONS (2)
  - Drug-device interaction [Recovered/Resolved]
  - Product use in unapproved indication [Recovered/Resolved]
